FAERS Safety Report 12116760 (Version 1)
Quarter: 2016Q1

REPORT INFORMATION
  Report Type: Spontaneous
  Country: US (occurrence: US)
  Receive Date: 20160225
  Receipt Date: 20160225
  Transmission Date: 20160526
  Serious: No
  Sender: FDA-Public Use
  Company Number: US-SILVERGATE PHARMACEUTICALS, INC.-2015SIL00007

PATIENT
  Age: 2 Year
  Sex: Male

DRUGS (2)
  1. EPANED [Suspect]
     Active Substance: ENALAPRIL MALEATE
     Indication: CARDIAC DISORDER
     Dosage: 2.5 ML, 2X/DAY
     Route: 048
     Dates: start: 2015
  2. ENALAPRIL [Suspect]
     Active Substance: ENALAPRIL
     Indication: CARDIAC DISORDER
     Dosage: UNK
     Dates: start: 2014, end: 2015

REACTIONS (1)
  - Blood lead increased [Recovering/Resolving]

NARRATIVE: CASE EVENT DATE: 20150718
